FAERS Safety Report 25703137 (Version 1)
Quarter: 2025Q3

REPORT INFORMATION
  Report Type: Report from Study
  Country: US (occurrence: US)
  Receive Date: 20250820
  Receipt Date: 20250820
  Transmission Date: 20251020
  Serious: Yes (Other)
  Sender: ABBVIE
  Company Number: US-ABBVIE-6395856

PATIENT
  Age: 71 Year
  Sex: Female

DRUGS (2)
  1. VENCLEXTA [Suspect]
     Active Substance: VENETOCLAX
     Indication: B-cell small lymphocytic lymphoma
     Dosage: TAKING TWO 100 MG ONCE DAILY
     Route: 048
     Dates: start: 20241001, end: 20250727
  2. IMBRUVICA [Suspect]
     Active Substance: IBRUTINIB
     Indication: B-cell small lymphocytic lymphoma
     Route: 048
     Dates: start: 20240710, end: 20250727

REACTIONS (5)
  - Upper limb fracture [Unknown]
  - Fall [Unknown]
  - Shoulder arthroplasty [Unknown]
  - Head injury [Unknown]
  - Swelling [Unknown]

NARRATIVE: CASE EVENT DATE: 20250727
